FAERS Safety Report 7805525-4 (Version None)
Quarter: 2011Q4

REPORT INFORMATION
  Report Type: 
  Country: None (occurrence: None)
  Receive Date: 20111010
  Receipt Date: 20110930
  Transmission Date: 20120403
  Serious: Yes (Hospitalization, Other)
  Sender: FDA-Public Use
  Company Number: US-ASTRAZENECA-2010SE24332

PATIENT
  Age: 78 Year
  Sex: Female

DRUGS (2)
  1. PREDNISONE [Concomitant]
  2. NEXIUM [Suspect]
     Route: 048

REACTIONS (4)
  - JOINT INJURY [None]
  - PNEUMONIA ESCHERICHIA [None]
  - RIB FRACTURE [None]
  - FALL [None]
